FAERS Safety Report 23052081 (Version 2)
Quarter: 2023Q4

REPORT INFORMATION
  Report Type: Spontaneous
  Country: US (occurrence: US)
  Receive Date: 20231010
  Receipt Date: 20231222
  Transmission Date: 20240110
  Serious: Yes (Death, Other)
  Sender: FDA-Public Use
  Company Number: US-MARINUS PHARMACEUTICALS, INC.-MAR2023000129

PATIENT

DRUGS (26)
  1. ZTALMY [Suspect]
     Active Substance: GANAXOLONE
     Indication: CDKL5 deficiency disorder
     Dosage: 10.5 MILLILITER, TID
     Dates: start: 202302, end: 2023
  2. FYCOMPA [Concomitant]
     Active Substance: PERAMPANEL
     Indication: Product used for unknown indication
     Dosage: 6 MILLIGRAM, QD
  3. OXYGEN [Concomitant]
     Active Substance: OXYGEN
     Indication: Seizure
     Dosage: 0.5-3 LPM AFTER SEIZURES,COUGHING SPELLS,PRN,PRN WHEN ASLEEP
     Route: 055
  4. OXYGEN [Concomitant]
     Active Substance: OXYGEN
     Indication: Cough
  5. OXYGEN [Concomitant]
     Active Substance: OXYGEN
     Indication: Oxygen therapy
  6. AZITHROMYCIN [Concomitant]
     Active Substance: AZITHROMYCIN
     Indication: Product used for unknown indication
     Dosage: 125 MILLIGRAM, EVERY MONDAY, WEDNESDAY, FRIDAY
  7. GLYCOPYRROLATE [Concomitant]
     Active Substance: GLYCOPYRROLATE
     Indication: Product used for unknown indication
     Dosage: 0.5 MILLIGRAM, BID
  8. CLOBAZAM [Concomitant]
     Active Substance: CLOBAZAM
     Indication: Product used for unknown indication
     Dosage: 30MG EVERY MORNING, 25MG AT BEDTIME
     Route: 048
  9. OMEPRAZOLE [Concomitant]
     Active Substance: OMEPRAZOLE
     Indication: Product used for unknown indication
     Dosage: 10 MILLIGRAM, QD
  10. KETOVIE 4:1 [Concomitant]
     Indication: Nutritional supplementation
     Dosage: 1000 MILLILITER, QD
  11. COMPLEAT [Concomitant]
     Indication: Nutritional supplementation
     Dosage: 250 MILLILITER, QD
  12. DIETARY SUPPLEMENT [Concomitant]
     Active Substance: DIETARY SUPPLEMENT
     Indication: Nutritional supplementation
     Dosage: 1 CAN, QD
  13. CLONIDINE [Concomitant]
     Active Substance: CLONIDINE
     Indication: Product used for unknown indication
     Dosage: ONE PATCH (0.3 MG/24HR), EVERY WEEK
     Route: 062
  14. SODIUM CHLORIDE [Concomitant]
     Active Substance: SODIUM CHLORIDE
     Indication: Respiratory distress
     Dosage: 4 MILLILITER, EVERY 6HRS, PRN
  15. FLUTICASONE FUROATE\SALMETEROL XINAFOATE [Concomitant]
     Active Substance: FLUTICASONE FUROATE\SALMETEROL XINAFOATE
     Indication: Product used for unknown indication
     Dosage: 2 PUFFS, BID
  16. ALBUTEROL SULFATE [Concomitant]
     Active Substance: ALBUTEROL SULFATE
     Indication: Malaise
     Dosage: 2 PUFFS, TID, CAN INCREASE TO 2 PUFFS EVERY 4 HOURS
  17. ALBUTEROL SULFATE [Concomitant]
     Active Substance: ALBUTEROL SULFATE
     Indication: Cough
  18. ALBUTEROL [Concomitant]
     Active Substance: ALBUTEROL
     Indication: Wheezing
     Dosage: 2.5 MILLIGRAM, EVERY 4 HOURS AS NEEDED
  19. ALBUTEROL [Concomitant]
     Active Substance: ALBUTEROL
     Indication: Cough
  20. TRANSDERM SCOP [Concomitant]
     Active Substance: SCOPOLAMINE
     Indication: Product used for unknown indication
     Dosage: 1 PATCH BEHIND ONE EAR EVERY 3 DAYS
     Route: 062
  21. DIASTAT ACUDIAL [Concomitant]
     Active Substance: DIAZEPAM
     Indication: Seizure
     Dosage: 7.5 MILLIGRAM, PRN
     Route: 054
  22. MELATONIN [Concomitant]
     Active Substance: MELATONIN
     Indication: Insomnia
     Dosage: 1 TABLET AT BEDTIME
  23. WHITE PETROLATUM [Concomitant]
     Active Substance: PETROLATUM
     Indication: Product used for unknown indication
     Dosage: 1 APPLICATION IN BOTH EYES, EVERY 4 HOURS
     Route: 047
  24. ERYTHROMYCIN BASE [Concomitant]
     Active Substance: ERYTHROMYCIN
     Indication: Product used for unknown indication
     Dosage: 1/2 TABLET, FOUR TIMES DAILY
  25. MIRALAX [Concomitant]
     Active Substance: POLYETHYLENE GLYCOL 3350
     Indication: Product used for unknown indication
     Dosage: 17 GRAM, BID
  26. SIMETHICONE (DIMETHICONE) [Concomitant]
     Active Substance: DIMETHICONE
     Indication: Flatulence
     Dosage: 40 MILLIGRAM, QID AS NEEDED

REACTIONS (2)
  - Respiratory failure [Fatal]
  - Cardiac arrest [Fatal]

NARRATIVE: CASE EVENT DATE: 20230922
